FAERS Safety Report 5219854-4 (Version None)
Quarter: 2007Q1

REPORT INFORMATION
  Report Type: 
  Country: None (occurrence: None)
  Receive Date: 20070125
  Receipt Date: 20061227
  Transmission Date: 20070707
  Serious: Yes (Death)
  Sender: FDA-Public Use
  Company Number: PHHO2006VE22174

PATIENT
  Age: 63 Year
  Sex: Male

DRUGS (2)
  1. ZELMAC / HTF 919A [Suspect]
     Indication: CONSTIPATION
     Dosage: 6 MG, BID
     Route: 048
     Dates: start: 20061001, end: 20061101
  2. LACTULOSE [Concomitant]
     Indication: ENCEPHALOPATHY

REACTIONS (1)
  - HEPATIC CIRRHOSIS [None]
